FAERS Safety Report 7731834-3 (Version None)
Quarter: 2011Q3

REPORT INFORMATION
  Report Type: 
  Country: None (occurrence: None)
  Receive Date: 20110906
  Receipt Date: 20110830
  Transmission Date: 20111222
  Serious: Yes (Hospitalization)
  Sender: FDA-Public Use
  Company Number: US-GENZYME-CERZ-1002222

PATIENT

DRUGS (2)
  1. CEREZYME [Suspect]
     Dosage: 60 U/KG, Q4W
     Route: 042
     Dates: start: 20040119
  2. CEREZYME [Suspect]
     Indication: GAUCHER'S DISEASE
     Dosage: 45 U/KG, Q2W
     Route: 042
     Dates: start: 20040119

REACTIONS (2)
  - BRADYCARDIA [None]
  - DIZZINESS [None]
